FAERS Safety Report 11774185 (Version 1)
Quarter: 2015Q4

REPORT INFORMATION
  Report Type: Spontaneous
  Country: US (occurrence: US)
  Receive Date: 20151124
  Receipt Date: 20151124
  Transmission Date: 20160304
  Serious: Yes (Other)
  Sender: FDA-Public Use
  Company Number: US-PFIZER INC-2015396189

PATIENT
  Sex: Female

DRUGS (1)
  1. ADVIL [Suspect]
     Active Substance: IBUPROFEN
     Dosage: 46 DF, UNK (TAKE 46 TABLETS EVERY HOUR)

REACTIONS (4)
  - Overdose [Unknown]
  - Mobility decreased [Unknown]
  - Faecal incontinence [Unknown]
  - Feeling abnormal [Unknown]
